FAERS Safety Report 5364883-3 (Version None)
Quarter: 2007Q2

REPORT INFORMATION
  Report Type: 
  Country: None (occurrence: None)
  Receive Date: 20070606
  Receipt Date: 20070126
  Transmission Date: 20071010
  Serious: Yes (Other)
  Sender: FDA-Public Use
  Company Number: 2006150528

PATIENT
  Sex: Female
  Weight: 79.8 kg

DRUGS (5)
  1. ELLENCE [Suspect]
     Dosage: (100 MG/M*2, EVERY DAY 21 DAYS), INTRAVENOUS
     Route: 042
     Dates: start: 20061020
  2. CYTOXAN [Concomitant]
  3. FLUOROURACIL [Concomitant]
  4. ALOXI [Concomitant]
  5. DECADRON [Concomitant]

REACTIONS (3)
  - ERYTHEMA [None]
  - OEDEMA [None]
  - PHLEBITIS [None]
